FAERS Safety Report 9134379 (Version 1)
Quarter: 2013Q1

REPORT INFORMATION
  Report Type: Report from Study
  Country: US (occurrence: US)
  Receive Date: 20130304
  Receipt Date: 20130304
  Transmission Date: 20140127
  Serious: Yes (Other)
  Sender: FDA-Public Use
  Company Number: US-ACCORD-016543

PATIENT
  Age: 69 Year
  Sex: Female

DRUGS (1)
  1. CLONAZEPAM [Suspect]
     Indication: SLEEP DISORDER

REACTIONS (5)
  - Somnolence [Unknown]
  - Thinking abnormal [Unknown]
  - Confusional state [Unknown]
  - Balance disorder [Unknown]
  - Off label use [Unknown]
